FAERS Safety Report 5158445-0 (Version None)
Quarter: 2006Q4

REPORT INFORMATION
  Report Type: 
  Country: None (occurrence: None)
  Receive Date: 20061128
  Receipt Date: 20061115
  Transmission Date: 20070319
  Serious: Yes (Hospitalization, Other)
  Sender: FDA-Public Use
  Company Number: PHBS2006TR17828

PATIENT
  Age: 44 Year
  Sex: Male

DRUGS (4)
  1. SANDIMMUNE [Suspect]
     Dosage: 200 MG/D
     Route: 048
     Dates: start: 20061017
  2. SANDIMMUNE [Suspect]
     Dosage: 300 MG/D
     Route: 048
  3. SANDIMMUNE [Suspect]
     Dosage: 50 MG/D
     Route: 042
     Dates: end: 20061114
  4. DERMOVATE [Suspect]
     Dosage: 4-5 TUBES/DAY
     Route: 061

REACTIONS (5)
  - DEPRESSION [None]
  - DIARRHOEA [None]
  - GASTROINTESTINAL OEDEMA [None]
  - NAUSEA [None]
  - VOMITING [None]
